FAERS Safety Report 8053442-X (Version None)
Quarter: 2012Q1

REPORT INFORMATION
  Report Type: 
  Country: None (occurrence: None)
  Receive Date: 20120118
  Receipt Date: 20120112
  Transmission Date: 20120608
  Serious: Yes (Hospitalization)
  Sender: FDA-Public Use
  Company Number: US-GLAXOSMITHKLINE-B0730663A

PATIENT
  Age: 73 Year
  Sex: Male
  Weight: 100 kg

DRUGS (1)
  1. AVANDIA [Suspect]
     Indication: DIABETES MELLITUS
     Dosage: 4MG TWICE PER DAY
     Route: 048
     Dates: start: 20020101, end: 20090901

REACTIONS (4)
  - VASCULAR GRAFT [None]
  - CARDIOMYOPATHY [None]
  - DYSPNOEA [None]
  - MYOCARDIAL INFARCTION [None]
